FAERS Safety Report 5099262-X (Version None)
Quarter: 2006Q3

REPORT INFORMATION
  Report Type: 
  Country: None (occurrence: None)
  Receive Date: 20060731
  Receipt Date: 20060329
  Transmission Date: 20061208
  Serious: Yes (Other)
  Sender: FDA-Public Use
  Company Number: US-2006-007051

PATIENT
  Age: 21 Year
  Sex: Female
  Weight: 59 kg

DRUGS (2)
  1. MAGNEVIST [Suspect]
     Indication: ANGIOGRAM
     Dosage: 20 ML, 1 DOSE, INTRAVENOUS, SEE IMAGE
     Route: 042
     Dates: start: 20060309, end: 20060309
  2. MAGNEVIST [Suspect]

REACTIONS (1)
  - THROMBOPHLEBITIS [None]
